FAERS Safety Report 4630925-3 (Version None)
Quarter: 2005Q2

REPORT INFORMATION
  Report Type: 
  Country: None (occurrence: None)
  Receive Date: 20050407
  Receipt Date: 20050407
  Transmission Date: 20051028
  Serious: Yes (Life-Threatening, Hospitalization)
  Sender: FDA-Public Use
  Company Number: None

PATIENT
  Age: 65 Year
  Sex: Female
  Weight: 117.8 kg

DRUGS (1)
  1. ENALAPRIL [Suspect]
     Indication: HYPERTENSION

REACTIONS (1)
  - ANGIONEUROTIC OEDEMA [None]
